FAERS Safety Report 7997991-9 (Version None)
Quarter: 2011Q4

REPORT INFORMATION
  Report Type: 
  Country: None (occurrence: None)
  Receive Date: 20111221
  Receipt Date: 20111216
  Transmission Date: 20120403
  Serious: Yes (Hospitalization, Other)
  Sender: FDA-Public Use
  Company Number: JP-PFIZER INC-2011305918

PATIENT
  Age: 78 Year
  Sex: Male
  Weight: 98 kg

DRUGS (2)
  1. ZYVOX [Suspect]
     Indication: INTERSTITIAL LUNG DISEASE
     Dosage: 600 MG, 2X/DAY
     Route: 042
     Dates: start: 20111104, end: 20111117
  2. ZYVOX [Suspect]
     Indication: STAPHYLOCOCCAL INFECTION

REACTIONS (2)
  - HYPOKALAEMIA [None]
  - PANCYTOPENIA [None]
